FAERS Safety Report 4773872-9 (Version None)
Quarter: 2005Q3

REPORT INFORMATION
  Report Type: 
  Country: None (occurrence: None)
  Receive Date: 20050920
  Receipt Date: 20040608
  Transmission Date: 20060218
  Serious: Yes (Other)
  Sender: FDA-Public Use
  Company Number: NL-ROCHE-370253

PATIENT
  Age: 24 Year
  Sex: Female

DRUGS (4)
  1. ROCEPHIN [Suspect]
     Indication: PYELONEPHRITIS
     Route: 042
     Dates: start: 20040528, end: 20040528
  2. DOXYCYCLINE [Concomitant]
     Indication: PYELONEPHRITIS
     Route: 048
     Dates: start: 20040528
  3. METRONIDAZOLE [Concomitant]
     Indication: PYELONEPHRITIS
     Route: 042
     Dates: start: 20040528
  4. DEPAKENE [Concomitant]
     Route: 048
     Dates: start: 20030615

REACTIONS (5)
  - CYANOSIS [None]
  - DYSPNOEA [None]
  - PETECHIAE [None]
  - PYREXIA [None]
  - THROMBOCYTOPENIA [None]
